FAERS Safety Report 9523623 (Version 1)
Quarter: 2013Q3

REPORT INFORMATION
  Report Type: Spontaneous
  Country: GB (occurrence: GB)
  Receive Date: 20130913
  Receipt Date: 20130913
  Transmission Date: 20140515
  Serious: Yes (Hospitalization, Other)
  Sender: FDA-Public Use
  Company Number: GB-BAYER-2013-106516

PATIENT
  Age: 75 Year
  Sex: Female

DRUGS (19)
  1. CIPROXIN 500 MG FILM-COATED TABLETS [Suspect]
     Indication: LOWER RESPIRATORY TRACT INFECTION
     Dosage: 500 MG, BID
     Route: 048
     Dates: start: 20121001, end: 20121007
  2. NATECAL D [Interacting]
     Dosage: 1 DF, QD
  3. ZINC SULPHATE [Interacting]
  4. ALENDRONIC ACID [Concomitant]
     Dosage: 70 MG, OW
  5. AMITRIPTYLINE [Concomitant]
     Dosage: 50 MG, QD
  6. ASPIRIN [Concomitant]
     Dosage: 75 MG, QD
  7. ATORVASTATIN [Concomitant]
     Dosage: 20 MG, QD
  8. CARBOCISTEINE [Concomitant]
     Dosage: UNK UNK, TID
  9. FUROSEMIDE [Concomitant]
     Dosage: 120 MG, BID
  10. GABAPENTIN [Concomitant]
  11. LOSARTAN [Concomitant]
     Dosage: 50 MG, QD
  12. NICOTINE [Concomitant]
  13. OMEPRAZOLE [Concomitant]
     Dosage: 40 MG, QD
  14. PREDNISOLONE [Concomitant]
  15. QUININE SULPHATE [Concomitant]
     Dosage: UNK UNK, QD
  16. SERETIDE [Concomitant]
     Dosage: 2 DF, BID
  17. TILDIEM RETARD [Concomitant]
     Dosage: UNK UNK, BID
  18. TIOTROPIUM BROMIDE [Concomitant]
     Dosage: 1 DF, QD
  19. TRAMADOL [Concomitant]
     Dosage: UNK UNK, PRN

REACTIONS (5)
  - Renal failure acute [Unknown]
  - Condition aggravated [Unknown]
  - Drug interaction [Unknown]
  - Dyspnoea [Unknown]
  - Treatment failure [Recovered/Resolved]
